FAERS Safety Report 12638152 (Version 2)
Quarter: 2017Q1

REPORT INFORMATION
  Report Type: Spontaneous
  Country: US (occurrence: US)
  Receive Date: 20160809
  Receipt Date: 20170209
  Transmission Date: 20170428
  Serious: No
  Sender: FDA-Public Use
  Company Number: US-SA-2016SA122698

PATIENT
  Age: 70 Year
  Sex: Female

DRUGS (15)
  1. ACCURETIC [Concomitant]
     Active Substance: HYDROCHLOROTHIAZIDE\QUINAPRIL HYDROCHLORIDE
  2. CLOTRIMAZOLE/BETAMETHASONE [Concomitant]
  3. BISOPROLOL FUMARATE. [Concomitant]
     Active Substance: BISOPROLOL FUMARATE
  4. AZITHROMYCIN ANHYDROUS. [Concomitant]
     Active Substance: AZITHROMYCIN ANHYDROUS
  5. WARFARIN [Concomitant]
     Active Substance: WARFARIN
     Dosage: 4 MG AND 5 MG
  6. NITROFURANTOIN. [Concomitant]
     Active Substance: NITROFURANTOIN
     Dosage: 100 MG: STRENGTH
  7. PRALUENT [Suspect]
     Active Substance: ALIROCUMAB
     Indication: TYPE IIA HYPERLIPIDAEMIA
     Route: 058
     Dates: start: 20160620
  8. AMITIZA [Concomitant]
     Active Substance: LUBIPROSTONE
  9. CEFUROXIME. [Concomitant]
     Active Substance: CEFUROXIME
  10. DILTIAZEM. [Concomitant]
     Active Substance: DILTIAZEM
  11. LEVOTHYROXINE. [Concomitant]
     Active Substance: LEVOTHYROXINE
  12. FOLIC ACID. [Concomitant]
     Active Substance: FOLIC ACID
  13. ALIROCUMAB PREFILLED PEN [Concomitant]
     Active Substance: ALIROCUMAB
     Indication: TYPE IIA HYPERLIPIDAEMIA
     Dates: start: 20160620
  14. CITALOPRAM [Concomitant]
     Active Substance: CITALOPRAM HYDROBROMIDE
  15. HYDROCODONE BITARTRATE AND ACETAMINOPHEN [Concomitant]
     Active Substance: ACETAMINOPHEN\HYDROCODONE BITARTRATE

REACTIONS (5)
  - Unevaluable event [Unknown]
  - Urticaria [Unknown]
  - Injection site swelling [Not Recovered/Not Resolved]
  - Pruritus [Unknown]
  - Injection site pruritus [Not Recovered/Not Resolved]

NARRATIVE: CASE EVENT DATE: 2016
